FAERS Safety Report 12350272 (Version 1)
Quarter: 2016Q2

REPORT INFORMATION
  Report Type: Spontaneous
  Country: US (occurrence: None)
  Receive Date: 20160509
  Receipt Date: 20160509
  Transmission Date: 20160815
  Serious: Yes (Other)
  Sender: FDA-Public Use
  Company Number: None

PATIENT
  Age: 20 Day
  Sex: Female
  Weight: 60.78 kg

DRUGS (12)
  1. CALCIUM [Concomitant]
     Active Substance: CALCIUM
  2. XANAX [Concomitant]
     Active Substance: ALPRAZOLAM
  3. ALBUTERAL [Concomitant]
     Active Substance: ALBUTEROL
  4. L-THYROXINE [Concomitant]
     Active Substance: LEVOTHYROXINE
  5. TOPAMAX [Concomitant]
     Active Substance: TOPIRAMATE
  6. SYMIBICORT [Concomitant]
  7. SINGULAIR [Concomitant]
     Active Substance: MONTELUKAST SODIUM
  8. BIOTIN1 [Concomitant]
  9. GADOLINIUM [Suspect]
     Active Substance: GADOLINIUM
  10. PROVENTIL [Concomitant]
     Active Substance: ALBUTEROL
  11. FLEXERIAL [Concomitant]
  12. AMBIEN [Concomitant]
     Active Substance: ZOLPIDEM TARTRATE

REACTIONS (12)
  - Musculoskeletal pain [None]
  - Bone pain [None]
  - Contrast media reaction [None]
  - Joint range of motion decreased [None]
  - Joint crepitation [None]
  - Pain in extremity [None]
  - No therapeutic response [None]
  - Feeling abnormal [None]
  - Pollakiuria [None]
  - Arthralgia [None]
  - General physical health deterioration [None]
  - Arthropathy [None]

NARRATIVE: CASE EVENT DATE: 20160323
